FAERS Safety Report 9586846 (Version 1)
Quarter: 2013Q4

REPORT INFORMATION
  Report Type: Spontaneous
  Country: US (occurrence: US)
  Receive Date: 20131003
  Receipt Date: 20131003
  Transmission Date: 20140711
  Serious: No
  Sender: FDA-Public Use
  Company Number: US-BAYER-2013-119590

PATIENT
  Age: 79 Year
  Sex: Female
  Weight: 62.59 kg

DRUGS (3)
  1. ALEVE CAPLET [Suspect]
     Indication: MUSCULOSKELETAL PAIN
     Dosage: 1 DF, PRN
     Route: 048
     Dates: start: 20131001
  2. COUMADIN [Concomitant]
  3. VITAMIN C [ASCORBIC ACID] [Concomitant]

REACTIONS (1)
  - Drug ineffective [None]
